FAERS Safety Report 4388175-4 (Version None)
Quarter: 2004Q2

REPORT INFORMATION
  Report Type: 
  Country: None (occurrence: None)
  Receive Date: 20040625
  Receipt Date: 20040616
  Transmission Date: 20050107
  Serious: Yes (Hospitalization)
  Sender: FDA-Public Use
  Company Number: 04H-163-0264290-00

PATIENT
  Age: 3 Year
  Sex: Male

DRUGS (2)
  1. LIPOSYN III 20% [Suspect]
     Dosage: EVERY 24 HOURS
  2. TPN [Concomitant]

REACTIONS (5)
  - BACILLUS INFECTION [None]
  - BACTERAEMIA [None]
  - PHARMACEUTICAL PRODUCT COMPLAINT [None]
  - PSEUDOMONAS INFECTION [None]
  - PYREXIA [None]
